FAERS Safety Report 16979613 (Version 3)
Quarter: 2020Q1

REPORT INFORMATION
  Report Type: Report from Study
  Country: BE (occurrence: BE)
  Receive Date: 20191031
  Receipt Date: 20200102
  Transmission Date: 20200409
  Serious: Yes (Other)
  Sender: FDA-Public Use
  Company Number: BE-BRISTOL-MYERS SQUIBB COMPANY-BMS-2019-063741

PATIENT
  Age: 54 Year
  Sex: Male

DRUGS (4)
  1. NIVOLUMAB [Suspect]
     Active Substance: NIVOLUMAB
     Indication: MALIGNANT MELANOMA
     Dosage: UNK
     Route: 065
     Dates: start: 20190528
  2. IMODIUM [Concomitant]
     Active Substance: LOPERAMIDE HYDROCHLORIDE
     Indication: PRODUCT USED FOR UNKNOWN INDICATION
     Route: 065
  3. MOTILIUM [Concomitant]
     Active Substance: DOMPERIDONE
     Indication: PRODUCT USED FOR UNKNOWN INDICATION
     Route: 065
  4. YERVOY [Suspect]
     Active Substance: IPILIMUMAB
     Indication: MALIGNANT MELANOMA
     Dosage: UNK
     Route: 065
     Dates: start: 20190528

REACTIONS (16)
  - Dysphonia [Unknown]
  - Macule [Unknown]
  - Decreased appetite [Unknown]
  - Weight decreased [Unknown]
  - Dry skin [Unknown]
  - Irritability [Unknown]
  - Nausea [Unknown]
  - Vomiting [Unknown]
  - Diarrhoea [Recovered/Resolved]
  - Pain [Unknown]
  - Hepatitis [Recovered/Resolved]
  - Skin exfoliation [Unknown]
  - Liver function test abnormal [Unknown]
  - Renal function test abnormal [Unknown]
  - Sciatica [Unknown]
  - Fatigue [Unknown]

NARRATIVE: CASE EVENT DATE: 20190618
